FAERS Safety Report 24736184 (Version 2)
Quarter: 2024Q4

REPORT INFORMATION
  Report Type: Spontaneous
  Country: KR (occurrence: KR)
  Receive Date: 20241216
  Receipt Date: 20241220
  Transmission Date: 20250115
  Serious: Yes (Other)
  Sender: AMGEN
  Company Number: KR-AMGEN-KORSP2024243507

PATIENT
  Sex: Male

DRUGS (1)
  1. REPATHA [Suspect]
     Active Substance: EVOLOCUMAB
     Indication: Product used for unknown indication
     Dosage: 240 MILLIGRAM, Q2WK
     Route: 065

REACTIONS (3)
  - Glaucoma [Unknown]
  - Optic nerve disorder [Unknown]
  - Off label use [Unknown]
